FAERS Safety Report 5314312-0 (Version None)
Quarter: 2007Q2

REPORT INFORMATION
  Report Type: 
  Country: None (occurrence: None)
  Receive Date: 20070502
  Receipt Date: 20070430
  Transmission Date: 20071010
  Serious: Yes (Hospitalization)
  Sender: FDA-Public Use
  Company Number: AUWYE549030APR07

PATIENT
  Sex: Male

DRUGS (3)
  1. EFFEXOR XR [Suspect]
     Indication: DEPRESSION
     Route: 048
     Dates: start: 20070401
  2. PRAZOSIN HCL [Concomitant]
     Indication: PROSTATIC ATROPHY
  3. SAW PALMETTO STANDARDIZED [Concomitant]

REACTIONS (3)
  - DIZZINESS [None]
  - TESTICULAR PAIN [None]
  - URINARY INCONTINENCE [None]
